FAERS Safety Report 7878579-7 (Version None)
Quarter: 2011Q4

REPORT INFORMATION
  Report Type: 
  Country: None (occurrence: None)
  Receive Date: 20111101
  Receipt Date: 20111101
  Transmission Date: 20120403
  Serious: Yes (Hospitalization)
  Sender: FDA-Public Use
  Company Number: None

PATIENT
  Age: 48 Year
  Sex: Female
  Weight: 68.946 kg

DRUGS (2)
  1. NASONEX [Suspect]
     Indication: INFLAMMATION
     Dosage: 1 SPRAY PER NOSTRIL
     Route: 045
     Dates: start: 20110908, end: 20111018
  2. NASONEX [Suspect]
     Indication: SINUS DISORDER
     Dosage: 1 SPRAY PER NOSTRIL
     Route: 045
     Dates: start: 20110908, end: 20111018

REACTIONS (6)
  - DYSPNOEA [None]
  - CHEST PAIN [None]
  - HYPERSOMNIA [None]
  - BLOOD PRESSURE DECREASED [None]
  - ECONOMIC PROBLEM [None]
  - FEELING ABNORMAL [None]
